FAERS Safety Report 23671432 (Version 1)
Quarter: 2024Q1

REPORT INFORMATION
  Report Type: Other
  Country: US (occurrence: None)
  Receive Date: 20240326
  Receipt Date: 20240326
  Transmission Date: 20240410
  Serious: Yes (Hospitalization, Other)
  Sender: FDA-Public Use
  Company Number: US-ROCHE-3527390

PATIENT
  Age: 51 Year
  Sex: Female
  Weight: 101.24 kg

DRUGS (7)
  1. OCREVUS [Suspect]
     Active Substance: OCRELIZUMAB
     Indication: Relapsing-remitting multiple sclerosis
     Dosage: DATE OF TREATMENT REPORTED 18/JAN/2021, 300MG IV, DAY 1 AND DAY 15, AND THEN 600MG IV EVERY 6 MONTHS
     Route: 042
  2. FUROSEMIDE [Concomitant]
     Active Substance: FUROSEMIDE
  3. CARVEDILOL [Concomitant]
     Active Substance: CARVEDILOL
  4. LAMOTRIGINE [Concomitant]
     Active Substance: LAMOTRIGINE
  5. XANAX [Concomitant]
     Active Substance: ALPRAZOLAM
  6. PROZAC [Concomitant]
     Active Substance: FLUOXETINE HYDROCHLORIDE
  7. TIZANIDINE [Concomitant]
     Active Substance: TIZANIDINE

REACTIONS (9)
  - Staphylococcal infection [Recovered/Resolved]
  - Blood potassium decreased [Recovered/Resolved]
  - Urinary tract infection [Not Recovered/Not Resolved]
  - Blindness unilateral [Recovered/Resolved]
  - Cataract [Recovered/Resolved]
  - Pain in extremity [Not Recovered/Not Resolved]
  - Optic neuritis [Not Recovered/Not Resolved]
  - Gait inability [Not Recovered/Not Resolved]
  - Obesity [Unknown]

NARRATIVE: CASE EVENT DATE: 20210901
